FAERS Safety Report 9849065 (Version 1)
Quarter: 2013Q4

REPORT INFORMATION
  Report Type: Spontaneous
  Country: US (occurrence: None)
  Receive Date: 20131224
  Receipt Date: 20131224
  Transmission Date: 20140711
  Serious: Yes (Other)
  Sender: FDA-Public Use
  Company Number: PHEH213US008966

PATIENT
  Sex: Female

DRUGS (1)
  1. METHYLPHENIDATE [Suspect]
     Indication: NARCOLEPSY
     Dosage: 1/4 DOSE OF 5 MG

REACTIONS (3)
  - Drug ineffective [None]
  - General physical condition abnormal [None]
  - Blood pressure increased [None]
